FAERS Safety Report 5354099-9 (Version None)
Quarter: 2007Q2

REPORT INFORMATION
  Report Type: 
  Country: None (occurrence: None)
  Receive Date: 20070608
  Receipt Date: 20070608
  Transmission Date: 20071010
  Serious: Yes (Hospitalization)
  Sender: FDA-Public Use
  Company Number: None

PATIENT
  Sex: Female
  Weight: 90.8 kg

DRUGS (1)
  1. CYTARABINE(63878) [Suspect]
     Dosage: 36000 MG

REACTIONS (3)
  - DIZZINESS POSTURAL [None]
  - DYSARTHRIA [None]
  - HEADACHE [None]
